FAERS Safety Report 8464697-1 (Version None)
Quarter: 2012Q2

REPORT INFORMATION
  Report Type: 
  Country: None (occurrence: None)
  Receive Date: 20120626
  Receipt Date: 20120618
  Transmission Date: 20120825
  Serious: No
  Sender: FDA-Public Use
  Company Number: US-PFIZER INC-2012132642

PATIENT
  Sex: Female
  Weight: 63.492 kg

DRUGS (4)
  1. PREMARIN [Suspect]
     Dosage: UNK
     Route: 067
  2. DIOVAN [Concomitant]
     Indication: HYPERTENSION
     Dosage: UNK, 3X/WEEK
  3. CRESTOR [Concomitant]
     Dosage: 5 MG, UNK
  4. PLAVIX [Concomitant]
     Dosage: UNK

REACTIONS (2)
  - ALOPECIA [None]
  - SKIN BURNING SENSATION [None]
